FAERS Safety Report 4731899-7 (Version None)
Quarter: 2005Q3

REPORT INFORMATION
  Report Type: 
  Country: None (occurrence: None)
  Receive Date: 20050802
  Receipt Date: 20050722
  Transmission Date: 20060218
  Serious: Yes (Hospitalization, Other)
  Sender: FDA-Public Use
  Company Number: FR-JNJFOC-20050602882

PATIENT
  Age: 82 Year
  Sex: Female

DRUGS (11)
  1. CAELYX [Suspect]
     Route: 042
  2. CAELYX [Suspect]
     Indication: OVARIAN CANCER
     Route: 042
  3. LORAZEPAM [Concomitant]
  4. KARDEGIC [Concomitant]
  5. APROVEL [Concomitant]
  6. ACETAMINOPHEN [Concomitant]
  7. FOLIC ACID [Concomitant]
  8. MOPRAL [Concomitant]
  9. TRANSIPEG [Concomitant]
  10. DOMPERIDONE [Concomitant]
  11. ALL OTHER THERAPEUTIC PRODUCTS [Concomitant]

REACTIONS (1)
  - TOXIC SKIN ERUPTION [None]
